FAERS Safety Report 8590783 (Version 3)
Quarter: 2012Q4

REPORT INFORMATION
  Report Type: 
  Country: DE (occurrence: KR)
  Receive Date: 20120601
  Receipt Date: 20121017
  Transmission Date: 20130627
  Serious: Yes (Hospitalization)
  Sender: FDA-Public Use
  Company Number: 2012SP001522

PATIENT
  Age: 64 Year
  Sex: Male

DRUGS (1)
  1. OMNARIS NASAL SPRAY [Suspect]
     Indication: RHINITIS ALLERGIC
     Route: 045
     Dates: start: 20120516, end: 20120519

REACTIONS (2)
  - Vomiting [Recovered/Resolved]
  - Dizziness [Recovered/Resolved]
